FAERS Safety Report 9227225 (Version 1)
Quarter: 2013Q1

REPORT INFORMATION
  Report Type: Spontaneous
  Country: US (occurrence: None)
  Receive Date: 20121012
  Receipt Date: 20121012
  Transmission Date: 20140127
  Serious: Yes (Hospitalization, Other)
  Sender: FDA-Public Use
  Company Number: 2011SP059328

PATIENT
  Age: 51 Year
  Sex: Male

DRUGS (3)
  1. TEMODAR (TEMOZOLOMIDE) [Suspect]
     Indication: NEOPLASM MALIGNANT
     Route: 048
     Dates: start: 20110915, end: 20111027
  2. KEPPRA ( LEVETIRACETAM) [Concomitant]
  3. TRILEPTAL ( OXCARBAZEPINE) [Concomitant]

REACTIONS (3)
  - Rash [None]
  - Hepatic enzyme increased [None]
  - Fatigue [None]
